FAERS Safety Report 26177790 (Version 1)
Quarter: 2025Q4

REPORT INFORMATION
  Report Type: Spontaneous
  Country: US (occurrence: US)
  Receive Date: 20251219
  Receipt Date: 20251219
  Transmission Date: 20260118
  Serious: Yes (Hospitalization, Other)
  Sender: BIOVITRUM
  Company Number: US-BIOVITRUM-2025-US-017656

PATIENT
  Age: 82 Year
  Sex: Male

DRUGS (1)
  1. VONJO [Suspect]
     Active Substance: PACRITINIB
     Indication: Myelofibrosis
     Dosage: TWICE DAILY
     Route: 048
     Dates: start: 20240315

REACTIONS (7)
  - Fluid retention [Unknown]
  - Peripheral swelling [Unknown]
  - Clostridium colitis [Unknown]
  - Impatience [Unknown]
  - Illness [Unknown]
  - Blood iron decreased [Unknown]
  - Irritability [Unknown]
